FAERS Safety Report 6475553-2 (Version None)
Quarter: 2009Q4

REPORT INFORMATION
  Report Type: 
  Country: None (occurrence: None)
  Receive Date: 20091204
  Receipt Date: 20091126
  Transmission Date: 20100525
  Serious: Yes (Hospitalization, Other)
  Sender: FDA-Public Use
  Company Number: TH-PFIZER INC-2009302944

PATIENT
  Age: 83 Year
  Sex: Female

DRUGS (13)
  1. LYRICA [Suspect]
     Indication: PAIN
     Dosage: 75 MG, SINGLE
     Route: 048
     Dates: start: 20091116, end: 20091116
  2. MUSCOL [Concomitant]
     Indication: PAIN
     Dosage: UNK
     Dates: start: 20091116
  3. VITAMIN B COMPLEX CAP [Concomitant]
     Indication: PAIN
     Dosage: UNK
     Dates: start: 20091116
  4. PLAVIX [Concomitant]
     Dosage: UNK
  5. LIPITOR [Concomitant]
     Dosage: UNK
  6. PLENDIL [Concomitant]
     Dosage: UNK
  7. TENORMIN [Concomitant]
     Dosage: UNK
  8. ALLOPURINOL [Concomitant]
     Dosage: UNK
  9. MIXTARD HUMAN 70/30 [Concomitant]
     Dosage: UNK
  10. EPREX [Concomitant]
     Dosage: UNK
  11. IMIPRAMINE [Concomitant]
  12. KETOSTERIL [Concomitant]
     Dosage: UNK
  13. LASIX [Concomitant]
     Dosage: UNK

REACTIONS (10)
  - DYSPHAGIA [None]
  - DYSPNOEA [None]
  - EXTERNAL EAR PAIN [None]
  - GAIT DISTURBANCE [None]
  - MEMORY IMPAIRMENT [None]
  - MUSCLE SPASTICITY [None]
  - MUSCULAR WEAKNESS [None]
  - NERVOUSNESS [None]
  - TONGUE PARALYSIS [None]
  - TREMOR [None]
